FAERS Safety Report 18241909 (Version 2)
Quarter: 2020Q4

REPORT INFORMATION
  Report Type: Report from Study
  Country: NL (occurrence: NL)
  Receive Date: 20200908
  Receipt Date: 20201023
  Transmission Date: 20210113
  Serious: Yes (Hospitalization)
  Sender: FDA-Public Use
  Company Number: NL-ROCHE-2584321

PATIENT
  Age: 70 Year
  Sex: Male

DRUGS (3)
  1. ENTRECTINIB [Suspect]
     Active Substance: ENTRECTINIB
     Indication: NEOPLASM
     Dosage: DATE OF MOST RECENT DOSE OF ENTRECTINIB ADMINISTERED PRIOR TO SERIOUS ADVERSE EVENT ONSET: 10/APR/20
     Route: 048
     Dates: start: 20200217
  2. CALCITRIOL. [Concomitant]
     Active Substance: CALCITRIOL
     Dates: start: 20200405, end: 20200410
  3. CALCIUM [Concomitant]
     Active Substance: CALCIUM
     Indication: HYPOPARATHYROIDISM
     Dates: start: 20200405, end: 20200410

REACTIONS (1)
  - Hypercalcaemia [Recovered/Resolved]

NARRATIVE: CASE EVENT DATE: 20200410
